FAERS Safety Report 21643011 (Version 3)
Quarter: 2022Q4

REPORT INFORMATION
  Report Type: Spontaneous
  Country: CZ (occurrence: CZ)
  Receive Date: 20221125
  Receipt Date: 20221215
  Transmission Date: 20230113
  Serious: Yes (Other)
  Sender: FDA-Public Use
  Company Number: CZ-LESVI-2022005371

PATIENT
  Age: 42 Year
  Sex: Female

DRUGS (1)
  1. RISPERDAL [Suspect]
     Active Substance: RISPERIDONE
     Indication: Psychotic disorder
     Dosage: ONSET OF SYMPTOMS ON DAY 25
     Route: 065

REACTIONS (2)
  - Pelvic venous thrombosis [Recovered/Resolved]
  - Peripheral artery thrombosis [Recovered/Resolved]
